FAERS Safety Report 18535111 (Version 1)
Quarter: 2020Q4

REPORT INFORMATION
  Report Type: Spontaneous
  Country: US (occurrence: US)
  Receive Date: 20201123
  Receipt Date: 20201123
  Transmission Date: 20210114
  Serious: Yes (Congenital Anomaly, Other)
  Sender: FDA-Public Use
  Company Number: US-PURDUE-USA-2020-0175795

PATIENT
  Sex: Female
  Weight: 1.81 kg

DRUGS (3)
  1. OXYCONTIN [Suspect]
     Active Substance: OXYCODONE HYDROCHLORIDE
     Indication: PRODUCT USED FOR UNKNOWN INDICATION
     Dosage: UNK
     Route: 064
  2. HYDROMORPHONE TABLETS [Suspect]
     Active Substance: HYDROMORPHONE
     Indication: PRODUCT USED FOR UNKNOWN INDICATION
     Dosage: UNK
     Route: 064
  3. HEROIN [Suspect]
     Active Substance: DIAMORPHINE
     Indication: PRODUCT USED FOR UNKNOWN INDICATION
     Dosage: UNK
     Route: 064

REACTIONS (11)
  - Drug dependence [Unknown]
  - Drug withdrawal syndrome neonatal [Unknown]
  - Multiple congenital abnormalities [Unknown]
  - Weight decrease neonatal [Unknown]
  - Foetal exposure during pregnancy [Unknown]
  - Emotional disorder [Unknown]
  - Separation anxiety disorder [Unknown]
  - Learning disability [Unknown]
  - Dental caries [Unknown]
  - Speech disorder [Unknown]
  - Developmental delay [Unknown]

NARRATIVE: CASE EVENT DATE: 201911
